FAERS Safety Report 10341763 (Version 15)
Quarter: 2015Q4

REPORT INFORMATION
  Report Type: Report from Study
  Country: US (occurrence: US)
  Receive Date: 20140725
  Receipt Date: 20151130
  Transmission Date: 20160304
  Serious: Yes (Other)
  Sender: FDA-Public Use
  Company Number: US-AMGEN-USASP2014054946

PATIENT
  Age: 69 Year
  Sex: Female
  Weight: 50.75 kg

DRUGS (4)
  1. ENBREL [Suspect]
     Active Substance: ETANERCEPT
     Dosage: UNK
     Route: 065
  2. ENBREL [Suspect]
     Active Substance: ETANERCEPT
     Indication: PSORIASIS
     Dosage: UNK
     Route: 065
  3. ENBREL [Suspect]
     Active Substance: ETANERCEPT
     Dosage: UNK
     Route: 065
  4. ENBREL [Suspect]
     Active Substance: ETANERCEPT
     Indication: RHEUMATOID ARTHRITIS
     Dosage: 50 MG, 2 TIMES/WK
     Route: 030
     Dates: start: 20140408

REACTIONS (7)
  - Diverticulitis [Unknown]
  - Chest pain [Unknown]
  - Unevaluable event [Not Recovered/Not Resolved]
  - Incorrect route of drug administration [Unknown]
  - Abdominal tenderness [Not Recovered/Not Resolved]
  - Device failure [Unknown]
  - Cough [Unknown]

NARRATIVE: CASE EVENT DATE: 20140401
